FAERS Safety Report 4463137-7 (Version None)
Quarter: 2004Q3

REPORT INFORMATION
  Report Type: 
  Country: None (occurrence: None)
  Receive Date: 20040928
  Receipt Date: 20040914
  Transmission Date: 20050211
  Serious: Yes (Death, Other)
  Sender: FDA-Public Use
  Company Number: NL_AMGEN-US092378

PATIENT
  Age: 9 Year
  Sex: Female

DRUGS (4)
  1. ENBREL [Suspect]
     Indication: JUVENILE ARTHRITIS
     Dosage: 0.4 MG/KG, 2 IN 2 WEEKS
     Dates: start: 20010101, end: 20020101
  2. REMICADE [Suspect]
     Indication: JUVENILE ARTHRITIS
     Dosage: 20 MG/KG, 1 IN 1 MONTHS
     Dates: start: 20020101
  3. METHOTREXATE [Concomitant]
  4. METHYLPREDNISOLONE [Concomitant]

REACTIONS (15)
  - ACUTE RESPIRATORY FAILURE [None]
  - CARDIAC ARREST [None]
  - CATHETER RELATED INFECTION [None]
  - CENTRAL VENOUS PRESSURE INCREASED [None]
  - CUTANEOUS TUBERCULOSIS [None]
  - DIFFUSE ALVEOLAR DAMAGE [None]
  - DRUG INEFFECTIVE [None]
  - ENTEROBACTER INFECTION [None]
  - ESCHERICHIA INFECTION [None]
  - LUNG INFILTRATION [None]
  - OPPORTUNISTIC INFECTION [None]
  - PNEUMONIA LIPOID [None]
  - PROCEDURAL COMPLICATION [None]
  - SHOCK [None]
  - SKIN SWELLING [None]
